FAERS Safety Report 14077179 (Version 2)
Quarter: 2020Q2

REPORT INFORMATION
  Report Type: Spontaneous
  Country: US (occurrence: US)
  Receive Date: 20171012
  Receipt Date: 20200603
  Transmission Date: 20200713
  Serious: Yes (Death, Other)
  Sender: FDA-Public Use
  Company Number: US-ASTRAZENECA-2017SF01641

PATIENT
  Age: 23742 Day
  Sex: Female
  Weight: 102.5 kg

DRUGS (33)
  1. OMEPRAZOLE. [Concomitant]
     Active Substance: OMEPRAZOLE
  2. PANTOPRAZOLE [Concomitant]
     Active Substance: PANTOPRAZOLE
  3. METFORMIN [Concomitant]
     Active Substance: METFORMIN HYDROCHLORIDE
  4. PREDNISONE. [Concomitant]
     Active Substance: PREDNISONE
  5. HYDROCORTISONE. [Concomitant]
     Active Substance: HYDROCORTISONE
  6. ENOXAPARIN SODIUM. [Concomitant]
     Active Substance: ENOXAPARIN SODIUM
  7. XARELTO [Concomitant]
     Active Substance: RIVAROXABAN
  8. MIRALAX [Concomitant]
     Active Substance: POLYETHYLENE GLYCOL 3350
  9. INVOKANA [Concomitant]
     Active Substance: CANAGLIFLOZIN
  10. VITAMIN D [Concomitant]
     Active Substance: VITAMIN D NOS
  11. PROAIR HFA [Concomitant]
     Active Substance: ALBUTEROL SULFATE
  12. CIPROFLOXACIN. [Concomitant]
     Active Substance: CIPROFLOXACIN
  13. IPRATROPIUM BROMIDE. [Concomitant]
     Active Substance: IPRATROPIUM BROMIDE
  14. POTASSIUM CHLORIDE. [Concomitant]
     Active Substance: POTASSIUM CHLORIDE
  15. DULERA [Concomitant]
     Active Substance: FORMOTEROL FUMARATE DIHYDRATE\MOMETASONE FUROATE
  16. CREON [Concomitant]
     Active Substance: PANCRELIPASE AMYLASE\PANCRELIPASE LIPASE\PANCRELIPASE PROTEASE
  17. FLUDROCORTISONE ACETATE. [Concomitant]
     Active Substance: FLUDROCORTISONE ACETATE
  18. AMOXICILLIN-CLAVULANATE POTASS [Concomitant]
  19. VITAMIN D [Concomitant]
     Active Substance: VITAMIN D NOS
  20. BYETTA [Suspect]
     Active Substance: EXENATIDE
     Dosage: 10MCG/0.04
     Route: 065
     Dates: start: 20140329
  21. LOSARTAN-HYDROCHLOROTHIAZIDE [Concomitant]
     Active Substance: HYDROCHLOROTHIAZIDE\LOSARTAN
  22. METOCLOPRAMIDE. [Concomitant]
     Active Substance: METOCLOPRAMIDE
  23. FUROSEMIDE. [Concomitant]
     Active Substance: FUROSEMIDE
  24. MEGESTROL ACETATE. [Concomitant]
     Active Substance: MEGESTROL ACETATE
  25. BYETTA [Suspect]
     Active Substance: EXENATIDE
     Route: 065
     Dates: start: 200902, end: 201510
  26. LEVOCETIRIZINE DIHYDROCHLORIDE. [Concomitant]
     Active Substance: LEVOCETIRIZINE DIHYDROCHLORIDE
  27. KLOR-CON [Concomitant]
     Active Substance: POTASSIUM CHLORIDE
  28. PROMETHAZINE-CODEINE [Concomitant]
     Active Substance: CODEINE PHOSPHATE\PROMETHAZINE
  29. FLUTICASONE PROPIONATE. [Concomitant]
     Active Substance: FLUTICASONE PROPIONATE
  30. TRIAMCINOLONE ACETONIDE. [Concomitant]
     Active Substance: TRIAMCINOLONE ACETONIDE
  31. MIRALAX [Concomitant]
     Active Substance: POLYETHYLENE GLYCOL 3350
  32. MONTELUKAST SODIUM. [Concomitant]
     Active Substance: MONTELUKAST SODIUM
  33. ONDANSETRON [Concomitant]
     Active Substance: ONDANSETRON

REACTIONS (9)
  - Klebsiella bacteraemia [Fatal]
  - Ductal adenocarcinoma of pancreas [Unknown]
  - Metastases to lymph nodes [Unknown]
  - Pancreatic carcinoma stage II [Fatal]
  - Hepatic failure [Fatal]
  - Escherichia bacteraemia [Fatal]
  - Metastases to central nervous system [Unknown]
  - Sepsis [Fatal]
  - Depression [Unknown]

NARRATIVE: CASE EVENT DATE: 20151028
